FAERS Safety Report 19258750 (Version 1)
Quarter: 2021Q2

REPORT INFORMATION
  Report Type: Spontaneous
  Country: GB (occurrence: GB)
  Receive Date: 20210514
  Receipt Date: 20210514
  Transmission Date: 20210717
  Serious: Yes (Other)
  Sender: FDA-Public Use
  Company Number: NVSC2021GB089921

PATIENT
  Sex: Female

DRUGS (1)
  1. LOSARTAN. [Suspect]
     Active Substance: LOSARTAN
     Indication: PRODUCT USED FOR UNKNOWN INDICATION
     Dosage: 100 MG, QD (50 MG TWO IN MORNING)
     Route: 065

REACTIONS (5)
  - Malaise [Unknown]
  - Headache [Unknown]
  - Fatigue [Unknown]
  - Arrhythmia [Unknown]
  - Product administration error [Unknown]
